FAERS Safety Report 15693685 (Version 1)
Quarter: 2018Q4

REPORT INFORMATION
  Report Type: Spontaneous
  Country: GB (occurrence: GB)
  Receive Date: 20181206
  Receipt Date: 20181206
  Transmission Date: 20190205
  Serious: Yes (Other)
  Sender: FDA-Public Use
  Company Number: GB-APOTEX-2018AP026555

PATIENT
  Sex: Female

DRUGS (1)
  1. SEROXAT [Suspect]
     Active Substance: PAROXETINE HYDROCHLORIDE
     Indication: PRODUCT USED FOR UNKNOWN INDICATION
     Dosage: 30 ML, UNK
     Route: 065

REACTIONS (8)
  - Alcoholism [Unknown]
  - Drug abuse [Unknown]
  - Self esteem decreased [Unknown]
  - Divorced [Unknown]
  - Stress [Unknown]
  - Drug ineffective [Unknown]
  - Parent-child problem [Unknown]
  - Suicide attempt [Unknown]
